FAERS Safety Report 22153473 (Version 3)
Quarter: 2023Q2

REPORT INFORMATION
  Report Type: Report from Study
  Country: KR (occurrence: KR)
  Receive Date: 20230329
  Receipt Date: 20230407
  Transmission Date: 20230722
  Serious: Yes (Hospitalization, Other)
  Sender: FDA-Public Use
  Company Number: KR-ABBVIE-22K-090-4459295-00

PATIENT
  Age: 66 Year
  Sex: Male
  Weight: 72 kg

DRUGS (17)
  1. RINVOQ [Suspect]
     Active Substance: UPADACITINIB
     Indication: Rheumatoid arthritis
     Route: 048
     Dates: start: 20220419
  2. AZULFIDINE [Concomitant]
     Active Substance: SULFASALAZINE
     Indication: Rheumatoid arthritis
     Dates: start: 20120427
  3. PREDNISOLONE [Concomitant]
     Active Substance: PREDNISOLONE
     Indication: Rheumatoid arthritis
     Dates: start: 20211228
  4. ASPIRIN [Concomitant]
     Active Substance: ASPIRIN
     Indication: Cardiovascular disorder
     Route: 048
     Dates: start: 20181116
  5. LEVOPLUS [Concomitant]
     Indication: Pneumonia
     Route: 048
     Dates: start: 20220628, end: 20220628
  6. CRESTOR [Concomitant]
     Active Substance: ROSUVASTATIN CALCIUM
     Indication: Hyperlipidaemia
     Route: 048
     Dates: start: 20181116
  7. DEXILANT [Concomitant]
     Active Substance: DEXLANSOPRAZOLE
     Indication: Gastrointestinal disorder prophylaxis
     Dosage: 30 MG
     Route: 048
     Dates: start: 20181116
  8. CANDEMORE [Concomitant]
     Indication: Hypertension
     Route: 048
     Dates: start: 20220405
  9. CANDEMORE [Concomitant]
     Indication: Hypertension
     Route: 048
     Dates: start: 20220405
  10. ERDOLANT [Concomitant]
     Indication: Interstitial lung disease
     Dosage: 300 MG
     Route: 048
     Dates: start: 20210904
  11. CAVID [Concomitant]
     Indication: Osteoporosis
     Route: 048
     Dates: start: 20210803
  12. DICAMAX 1000 [Concomitant]
     Indication: Osteoporosis
     Route: 048
     Dates: start: 20181214
  13. MEDILAC DS [Concomitant]
     Indication: Gastrointestinal disorder prophylaxis
     Route: 048
     Dates: start: 20220618, end: 20220618
  14. CANDELOTAN [Concomitant]
     Indication: Hypertension
     Route: 048
     Dates: start: 20220620
  15. ALDACTONE [Concomitant]
     Active Substance: SPIRONOLACTONE
     Indication: Hypertension
     Route: 048
     Dates: start: 20220624, end: 20220628
  16. ZOPYRIN [Concomitant]
     Indication: Rheumatoid arthritis
  17. Cough syr [Concomitant]
     Indication: Pneumonia
     Dosage: TIME INTERVAL: 0.33333333 DAYS
     Route: 048
     Dates: start: 20220617, end: 20220712

REACTIONS (1)
  - Idiopathic pulmonary fibrosis [Unknown]

NARRATIVE: CASE EVENT DATE: 20220613
